FAERS Safety Report 14599938 (Version 3)
Quarter: 2019Q3

REPORT INFORMATION
  Report Type: Spontaneous
  Country: US (occurrence: US)
  Receive Date: 20180305
  Receipt Date: 20190804
  Transmission Date: 20191004
  Serious: Yes (Other)
  Sender: FDA-Public Use
  Company Number: US-ABBVIE-17P-163-2047115-00

PATIENT
  Age: 39 Year
  Sex: Male

DRUGS (8)
  1. ABILIFY MAINTENA [Suspect]
     Active Substance: ARIPIPRAZOLE
     Indication: BIPOLAR II DISORDER
     Dosage: 750 MG IN THE MORNING AND 1000 MG IN THE EVENING
     Route: 065
  2. ABILIFY [Suspect]
     Active Substance: ARIPIPRAZOLE
     Indication: PRODUCT USED FOR UNKNOWN INDICATION
     Route: 048
  3. NEURONTIN [Concomitant]
     Active Substance: GABAPENTIN
     Indication: PRODUCT USED FOR UNKNOWN INDICATION
     Route: 065
  4. BENZTROPINE. [Concomitant]
     Active Substance: BENZTROPINE
     Indication: PRODUCT USED FOR UNKNOWN INDICATION
     Route: 065
  5. ABILIFY MAINTENA [Suspect]
     Active Substance: ARIPIPRAZOLE
     Indication: BIPOLAR I DISORDER
     Route: 065
     Dates: start: 201609
  6. DEPAKOTE ER [Suspect]
     Active Substance: DIVALPROEX SODIUM
     Indication: PRODUCT USED FOR UNKNOWN INDICATION
     Route: 065
  7. DEPAKOTE ER [Suspect]
     Active Substance: DIVALPROEX SODIUM
     Dosage: 750 MG IN THE MORNING AND 1000 MG AT NIGHT
     Route: 065
  8. LIBRIUM [Concomitant]
     Active Substance: CHLORDIAZEPOXIDE HYDROCHLORIDE
     Indication: PRODUCT USED FOR UNKNOWN INDICATION
     Route: 065

REACTIONS (30)
  - Tremor [Unknown]
  - Suicidal behaviour [Unknown]
  - Negative thoughts [Unknown]
  - Peripheral swelling [Unknown]
  - Weight increased [Unknown]
  - Off label use [Unknown]
  - Oropharyngeal pain [Unknown]
  - Hypersensitivity [Unknown]
  - Hypertension [Unknown]
  - Aggression [Unknown]
  - Ex-tobacco user [Unknown]
  - Lipoma [Not Recovered/Not Resolved]
  - Breast mass [Unknown]
  - Fatigue [Unknown]
  - Intentional product use issue [Unknown]
  - Anxiety [Unknown]
  - Fluid retention [Unknown]
  - Nerve compression [Unknown]
  - Joint swelling [Unknown]
  - Apathy [Unknown]
  - Malaise [Unknown]
  - Back pain [Not Recovered/Not Resolved]
  - Depressed mood [Unknown]
  - Erythema [Unknown]
  - Dizziness [Unknown]
  - Off label use [Unknown]
  - Myalgia [Unknown]
  - Anger [Unknown]
  - Sleep disorder [Unknown]
  - Imprisonment [Unknown]

NARRATIVE: CASE EVENT DATE: 201609
